FAERS Safety Report 4523984-X (Version None)
Quarter: 2004Q4

REPORT INFORMATION
  Report Type: 
  Country: None (occurrence: None)
  Receive Date: 20041210
  Receipt Date: 20030626
  Transmission Date: 20050328
  Serious: Yes (Hospitalization, Disabling, Other)
  Sender: FDA-Public Use
  Company Number: US-ABBOTT-03P-163-0223219-00

PATIENT
  Sex: Female
  Weight: 67.192 kg

DRUGS (25)
  1. DEPAKOTE [Suspect]
     Indication: HEADACHE
     Route: 048
     Dates: start: 19970601
  2. DEPAKOTE [Suspect]
     Route: 048
     Dates: start: 20040225
  3. DEPAKOTE ER [Suspect]
     Indication: MIGRAINE
     Dates: end: 20040225
  4. VICOPROFEN [Suspect]
     Indication: MIGRAINE
     Dates: start: 19990119, end: 20000131
  5. GABAPENTIN [Concomitant]
     Indication: PAIN
     Route: 048
     Dates: start: 20030101
  6. SOLMOL [Concomitant]
     Route: 048
     Dates: start: 20020101
  7. AMITRIPTYLINE HCL [Concomitant]
     Indication: SLEEP DISORDER
     Dates: start: 19980101
  8. PROMETHAZINE HCL [Concomitant]
     Indication: NAUSEA
     Route: 048
     Dates: start: 19940101
  9. NORCO 10 [Concomitant]
     Indication: HEADACHE
     Route: 048
     Dates: start: 19890101
  10. OXYCOCET [Concomitant]
     Indication: HEADACHE
     Route: 048
     Dates: start: 20021001
  11. DIAZEPAM [Concomitant]
     Route: 048
  12. PHENERGAN [Concomitant]
     Indication: NAUSEA
  13. FLUOXETINE HYDROCHLORIDE [Concomitant]
     Indication: DEPRESSION
     Route: 048
  14. ZOLPIDEM TARTRATE [Concomitant]
     Indication: DRUG USE FOR UNKNOWN INDICATION
     Dates: start: 19981110, end: 19990513
  15. PROPACET 100 [Concomitant]
     Indication: DRUG USE FOR UNKNOWN INDICATION
     Route: 048
     Dates: start: 19990119
  16. INDOMETHACIN [Concomitant]
     Indication: DRUG USE FOR UNKNOWN INDICATION
     Dates: start: 19990503
  17. TEMAZEPAM [Concomitant]
     Indication: INSOMNIA
     Dosage: 15-30 MILLIGRAMS
     Route: 048
     Dates: start: 19990513
  18. PAROXETINE HYDROCHLORIDE [Concomitant]
     Indication: STRESS SYMPTOMS
     Route: 048
     Dates: start: 19990723
  19. LANSOPRAZOLE [Concomitant]
     Indication: NAUSEA
     Dates: start: 19990617
  20. MIDRID [Concomitant]
     Indication: HEADACHE
  21. MELOXICAM [Concomitant]
     Indication: HEADACHE
     Dates: start: 20010823
  22. VERAPAMIL HYDROCHLORIDE [Concomitant]
     Indication: HEADACHE
     Route: 048
     Dates: start: 20020314
  23. PERCODAN [Concomitant]
     Indication: PAIN
     Dates: start: 20020314
  24. VICODIN [Concomitant]
     Indication: HEADACHE
     Route: 048
     Dates: end: 19990109
  25. BROMFENAC SODIUM [Concomitant]
     Indication: HEADACHE
     Dates: start: 19970926

REACTIONS (67)
  - ABDOMINAL PAIN [None]
  - ARTHRALGIA [None]
  - ARTHROPOD BITE [None]
  - ASTHMA [None]
  - BIPOLAR DISORDER [None]
  - BLADDER PAIN [None]
  - BRONCHITIS ACUTE [None]
  - CONSTIPATION [None]
  - CYSTOCELE [None]
  - DEHYDRATION [None]
  - DENTAL CARIES [None]
  - DEPRESSION [None]
  - DERMAL CYST [None]
  - DIVERTICULITIS [None]
  - DYSPAREUNIA [None]
  - EAR INFECTION [None]
  - EAR PAIN [None]
  - FALL [None]
  - FATIGUE [None]
  - FIBROMYALGIA [None]
  - GASTROINTESTINAL HAEMORRHAGE [None]
  - GRIP STRENGTH DECREASED [None]
  - HAEMATEMESIS [None]
  - HERPES ZOSTER [None]
  - HIATUS HERNIA [None]
  - HOT FLUSH [None]
  - HYPERHIDROSIS [None]
  - INCREASED TENDENCY TO BRUISE [None]
  - INSOMNIA [None]
  - INTERVERTEBRAL DISC DEGENERATION [None]
  - INTERVERTEBRAL DISC DISORDER [None]
  - INTERVERTEBRAL DISC PROTRUSION [None]
  - INTESTINAL POLYP [None]
  - IRRITABLE BOWEL SYNDROME [None]
  - LIMB INJURY [None]
  - LIPOMA [None]
  - LYMPHADENOPATHY [None]
  - MOTOR DYSFUNCTION [None]
  - MUSCLE SPASMS [None]
  - NAUSEA [None]
  - NEURALGIA [None]
  - OBSESSIVE-COMPULSIVE DISORDER [None]
  - PAIN [None]
  - PAIN IN EXTREMITY [None]
  - PARANASAL SINUS HYPERSECRETION [None]
  - PERIODONTAL INFECTION [None]
  - PHARYNGITIS [None]
  - PHLEBITIS SUPERFICIAL [None]
  - PLEURITIC PAIN [None]
  - PRODUCTIVE COUGH [None]
  - PULMONARY CONGESTION [None]
  - RADICULITIS LUMBOSACRAL [None]
  - RASH [None]
  - RECTAL HAEMORRHAGE [None]
  - RECTOCELE [None]
  - SCIATICA [None]
  - SPONDYLOSIS [None]
  - STOMACH DISCOMFORT [None]
  - TOOTH ABSCESS [None]
  - TOOTH DISORDER [None]
  - URINARY INCONTINENCE [None]
  - URINARY TRACT INFECTION [None]
  - URTICARIA [None]
  - VOMITING [None]
  - WEIGHT DECREASED [None]
  - WOUND [None]
  - WOUND INFECTION STAPHYLOCOCCAL [None]
